FAERS Safety Report 7519382-7 (Version None)
Quarter: 2011Q2

REPORT INFORMATION
  Report Type: 
  Country: None (occurrence: None)
  Receive Date: 20110602
  Receipt Date: 20110527
  Transmission Date: 20111010
  Serious: Yes (Hospitalization, Other)
  Sender: FDA-Public Use
  Company Number: PHHY2011CH05008

PATIENT
  Age: 59 Year
  Sex: Male

DRUGS (4)
  1. AMOXICILLIN AND CLAVULANATE POTASSIUM [Suspect]
     Dosage: UNK
     Dates: start: 20100301
  2. ENALAPRIL MALEATE [Concomitant]
     Dosage: UNK
  3. TESTOSTERONE [Concomitant]
     Dosage: UNK
  4. HERBAL PREPARATION [Suspect]
     Dosage: UNK

REACTIONS (8)
  - LIVER INJURY [None]
  - CHOLELITHIASIS [None]
  - HEPATOTOXICITY [None]
  - JAUNDICE [None]
  - TRANSAMINASES INCREASED [None]
  - CHOLESTASIS [None]
  - GAMMA-GLUTAMYLTRANSFERASE INCREASED [None]
  - ASTHENIA [None]
